FAERS Safety Report 14783550 (Version 6)
Quarter: 2018Q2

REPORT INFORMATION
  Report Type: Spontaneous
  Country: FR (occurrence: FR)
  Receive Date: 20180420
  Receipt Date: 20180625
  Transmission Date: 20180711
  Serious: Yes (Death, Other)
  Sender: FDA-Public Use
  Company Number: FR-BAYER-2018-076038

PATIENT
  Age: 56 Year
  Sex: Male

DRUGS (1)
  1. ULTRAVIST [Suspect]
     Active Substance: IOPROMIDE
     Indication: SCAN WITH CONTRAST
     Dosage: , ONCE
     Dates: start: 20180228

REACTIONS (16)
  - Urinary incontinence [None]
  - Muscle rigidity [None]
  - Haemorrhage [None]
  - Nausea [None]
  - Anaphylactic shock [None]
  - Burning sensation [None]
  - Joint stiffness [None]
  - Malaise [None]
  - Cyanosis [None]
  - Multiple organ dysfunction syndrome [Fatal]
  - Loss of consciousness [None]
  - Cardio-respiratory arrest [Fatal]
  - Agitation [None]
  - Micturition urgency [None]
  - Anal incontinence [None]
  - Heart rate decreased [None]

NARRATIVE: CASE EVENT DATE: 20180228
